FAERS Safety Report 17048082 (Version 4)
Quarter: 2021Q1

REPORT INFORMATION
  Report Type: Spontaneous
  Country: US (occurrence: US)
  Receive Date: 20191119
  Receipt Date: 20210226
  Transmission Date: 20210419
  Serious: Yes (Other)
  Sender: FDA-Public Use
  Company Number: US-PFIZER INC-2016326691

PATIENT
  Age: 72 Year
  Sex: Female
  Weight: 86 kg

DRUGS (5)
  1. PREMARIN [Suspect]
     Active Substance: ESTROGENS, CONJUGATED
     Dosage: UNK
     Dates: start: 1979
  2. ESTRADIOL. [Concomitant]
     Active Substance: ESTRADIOL
     Dosage: UNK
     Dates: start: 20201215
  3. PREMARIN [Suspect]
     Active Substance: ESTROGENS, CONJUGATED
     Dosage: UNK
  4. PREMARIN [Suspect]
     Active Substance: ESTROGENS, CONJUGATED
     Dosage: 1.25 MG, UNK
  5. CELEBREX [Suspect]
     Active Substance: CELECOXIB
     Indication: ARTHRITIS
     Dosage: UNK

REACTIONS (9)
  - Drug dispensed to wrong patient [Unknown]
  - Intentional product misuse [Unknown]
  - Homicidal ideation [Unknown]
  - Back pain [Unknown]
  - Walking disability [Unknown]
  - Drug ineffective [Unknown]
  - Pain [Unknown]
  - Depressed mood [Unknown]
  - Movement disorder [Unknown]
